FAERS Safety Report 5456567-8 (Version None)
Quarter: 2007Q3

REPORT INFORMATION
  Report Type: 
  Country: None (occurrence: None)
  Receive Date: 20070914
  Receipt Date: 20070914
  Transmission Date: 20080115
  Serious: No
  Sender: FDA-Public Use
  Company Number: None

PATIENT
  Sex: Female

DRUGS (4)
  1. GLUCOPHAGE XR [Suspect]
     Dosage: ONE TABLET EACH DAY ORAL
     Route: 048
  2. PRILOSEC [Concomitant]
  3. MAXZIDE [Concomitant]
  4. CHANTIX [Concomitant]

REACTIONS (2)
  - NAUSEA [None]
  - PHARMACEUTICAL PRODUCT COMPLAINT [None]
